FAERS Safety Report 6506340-4 (Version None)
Quarter: 2009Q4

REPORT INFORMATION
  Report Type: 
  Country: None (occurrence: None)
  Receive Date: 20091218
  Receipt Date: 20091207
  Transmission Date: 20100525
  Serious: Yes (Hospitalization, Other)
  Sender: FDA-Public Use
  Company Number: US-ELI_LILLY_AND_COMPANY-US200912001838

PATIENT
  Sex: Female

DRUGS (12)
  1. FORTEO [Suspect]
     Indication: OSTEOPOROSIS
     Dosage: 20 UG, DAILY (1/D)
     Route: 058
     Dates: start: 20090101
  2. VALIUM [Concomitant]
     Dosage: 2 MG, UNKNOWN
  3. VICODIN [Concomitant]
     Dosage: UNK, UNKNOWN
  4. ZOLOFT [Concomitant]
     Dosage: UNK, UNKNOWN
  5. ATENOLOL [Concomitant]
     Dosage: UNK, UNKNOWN
  6. VITAMIN D [Concomitant]
     Dosage: UNK, MONTHLY (1/M)
  7. OMEPRAZOLE [Concomitant]
     Dosage: UNK, UNKNOWN
  8. HYOSCYAMINE [Concomitant]
     Dosage: UNK, UNKNOWN
  9. SIMVASTATIN [Concomitant]
     Dosage: UNK, UNKNOWN
  10. CALTRATE + D [Concomitant]
     Dosage: 600 MG, DAILY (1/D)
  11. OTHER ANTIDIARRHOEALS [Concomitant]
     Dosage: UNK, UNKNOWN
  12. OTHER HYPNOTICS AND SEDATIVES [Concomitant]
     Dosage: UNK, UNKNOWN

REACTIONS (13)
  - ASTHENIA [None]
  - EYE DISORDER [None]
  - EYE LASER SURGERY [None]
  - FEELING ABNORMAL [None]
  - FRACTURE [None]
  - GAIT DISTURBANCE [None]
  - HEADACHE [None]
  - MUSCLE SPASMS [None]
  - MUSCULOSKELETAL PAIN [None]
  - OSTEOPOROSIS [None]
  - PAIN [None]
  - STRESS [None]
  - VISUAL ACUITY REDUCED [None]
